FAERS Safety Report 15221918 (Version 1)
Quarter: 2018Q3

REPORT INFORMATION
  Report Type: Spontaneous
  Country: CN (occurrence: CN)
  Receive Date: 20180731
  Receipt Date: 20180731
  Transmission Date: 20181010
  Serious: Yes (Other)
  Sender: FDA-Public Use
  Company Number: CN-CMP PHARMA-2018CMP00023

PATIENT
  Age: 58 Year
  Sex: Female

DRUGS (4)
  1. OMNIPAQUE [Concomitant]
     Active Substance: IOHEXOL
     Dosage: 1 ML, UNK
     Route: 008
  2. ROPIVACAINE [Suspect]
     Active Substance: ROPIVACAINE
     Indication: BACK PAIN
     Dosage: 1.5 ML, UNK, LUMBAR NERVE ROOT INJECTIONS TO THE RIGHT L3 AND L4 NERVE ROOTS
     Route: 050
  3. TRIAMCINOLONE [Suspect]
     Active Substance: TRIAMCINOLONE
     Indication: BACK PAIN
     Dosage: ^0.5 ML OF A PLANNED TOTAL INJECTATE OF 5 ML (0.375% ROPIVACAINE + 1 ML OF 40 MG/ML TRIAMCINOLONE)^
     Route: 008
  4. ROPIVACAINE [Suspect]
     Active Substance: ROPIVACAINE
     Dosage: ^0.5 ML OF A PLANNED TOTAL INJECTATE OF 5 ML (0.375% ROPIVACAINE + 1 ML OF 40 MG/ML TRIAMCINOLONE)^
     Route: 008

REACTIONS (1)
  - Myoclonus [Recovered/Resolved]
